FAERS Safety Report 5781290-X (Version None)
Quarter: 2008Q2

REPORT INFORMATION
  Report Type: 
  Country: None (occurrence: None)
  Receive Date: 20080623
  Receipt Date: 20080522
  Transmission Date: 20081010
  Serious: No
  Sender: FDA-Public Use
  Company Number: US-BAYER-200823913NA

PATIENT
  Age: 21 Year
  Sex: Female

DRUGS (3)
  1. YAZ [Suspect]
     Indication: CONTRACEPTION
     Route: 048
     Dates: start: 20071101
  2. GARDASIL [Concomitant]
     Dates: start: 20080501
  3. AMBIEN [Concomitant]
     Dates: start: 20080501

REACTIONS (1)
  - METRORRHAGIA [None]
